FAERS Safety Report 12247208 (Version 1)
Quarter: 2016Q2

REPORT INFORMATION
  Report Type: Spontaneous
  Country: DE (occurrence: DE)
  Receive Date: 20160407
  Receipt Date: 20160407
  Transmission Date: 20160815
  Serious: Yes (Hospitalization)
  Sender: FDA-Public Use
  Company Number: DE-009507513-1604DEU004485

PATIENT
  Age: 76 Year
  Sex: Male

DRUGS (5)
  1. ADENURIC [Concomitant]
     Active Substance: FEBUXOSTAT
     Dosage: STRENGTH, 80 (UNITS UNSPECIFIED), QD
  2. ASPIRIN. [Concomitant]
     Active Substance: ASPIRIN
     Dosage: STRENGTH 100 (UNITS UNSPECIFIED), QD
     Route: 048
  3. PANTOZOL [Concomitant]
     Active Substance: PANTOPRAZOLE SODIUM
     Dosage: 40 MG, QD
  4. TIOBLIS 10 MG/80 MG [Suspect]
     Active Substance: ATORVASTATIN\EZETIMIBE
     Indication: HYPERCHOLESTEROLAEMIA
     Dosage: STRENGTH REPORTED AS: 10/80 UNITS NOT PROVIDED
     Route: 048
     Dates: start: 20160307
  5. BISOPROLOL [Concomitant]
     Active Substance: BISOPROLOL
     Dosage: STRENGTH: 5 UNITS NOT PROVIDED, TOTAL DAILY DOSE7.5 (UNITS NOT PROVIDED), FREQUENCY, 1-0-1/2

REACTIONS (1)
  - Gastrointestinal haemorrhage [Recovered/Resolved]

NARRATIVE: CASE EVENT DATE: 201603
